FAERS Safety Report 9333448 (Version 2)
Quarter: 2013Q2

REPORT INFORMATION
  Report Type: Spontaneous
  Country: US (occurrence: None)
  Receive Date: 20130604
  Receipt Date: 20130614
  Transmission Date: 20140414
  Serious: Yes (Hospitalization, Other)
  Sender: FDA-Public Use
  Company Number: ADR-2013-00923

PATIENT
  Age: 45 Year
  Sex: Female

DRUGS (4)
  1. BACLOFEN INTRATHECAL [Suspect]
     Indication: SPINAL PAIN
  2. MORPHINE [Concomitant]
  3. BUPIVACAINE [Concomitant]
  4. CLONIDINE [Concomitant]

REACTIONS (4)
  - Device dislocation [None]
  - Staphylococcal infection [None]
  - Cardiac disorder [None]
  - Pneumonia [None]
